FAERS Safety Report 23777209 (Version 1)
Quarter: 2024Q2

REPORT INFORMATION
  Report Type: Spontaneous
  Country: US (occurrence: US)
  Receive Date: 20240424
  Receipt Date: 20240424
  Transmission Date: 20240716
  Serious: No
  Sender: FDA-Public Use
  Company Number: US-JNJFOC-20240384878

PATIENT

DRUGS (1)
  1. ROGAINE [Suspect]
     Active Substance: MINOXIDIL
     Indication: Product used for unknown indication
     Route: 061

REACTIONS (6)
  - Alopecia [Unknown]
  - Hair disorder [Unknown]
  - Seborrhoea [Unknown]
  - Suspected counterfeit product [Unknown]
  - Product container issue [Unknown]
  - Product formulation issue [Unknown]
